FAERS Safety Report 4634740-6 (Version None)
Quarter: 2005Q2

REPORT INFORMATION
  Report Type: 
  Country: None (occurrence: None)
  Receive Date: 20050412
  Receipt Date: 20050401
  Transmission Date: 20051028
  Serious: Yes (Other)
  Sender: FDA-Public Use
  Company Number: 200511400BCC

PATIENT
  Sex: Male

DRUGS (1)
  1. ASPIRIN [Suspect]
     Dosage: 975 MG, ORAL
     Route: 048

REACTIONS (5)
  - CHEST PAIN [None]
  - COUGH [None]
  - DRY SKIN [None]
  - HAEMOPTYSIS [None]
  - RASH [None]
